FAERS Safety Report 20020149 (Version 5)
Quarter: 2022Q3

REPORT INFORMATION
  Report Type: Report from Study
  Country: DE (occurrence: DE)
  Receive Date: 20211101
  Receipt Date: 20220829
  Transmission Date: 20221026
  Serious: Yes (Other)
  Sender: FDA-Public Use
  Company Number: DE-002147023-NVSC2020DE134093

PATIENT
  Sex: Female
  Weight: 55.5 kg

DRUGS (3)
  1. LETROZOLE [Suspect]
     Active Substance: LETROZOLE
     Indication: Breast cancer metastatic
     Dosage: 2.5 MILLIGRAM, QD (2.5 MG, QD (DAILY)  )
     Route: 048
     Dates: start: 20200407, end: 20210326
  2. KISQALI [Suspect]
     Active Substance: RIBOCICLIB
     Indication: Breast cancer metastatic
     Dosage: 400 MILLIGRAM, QD (400 MG, QD (SCHEMA 21 DAYS INTAKE, 7 DAYS PAUSE))
     Route: 048
     Dates: start: 20200501, end: 20210326
  3. KISQALI [Suspect]
     Active Substance: RIBOCICLIB
     Dosage: 600 MILLIGRAM, QD (600 MG, QD (SCHEMA 21 DAYS INTAKE, 7 DAYS PAUSE))
     Route: 048
     Dates: start: 20200407, end: 20200422

REACTIONS (13)
  - Leukopenia [Recovered/Resolved]
  - Arthropod sting [Recovered/Resolved]
  - Blood calcium increased [Not Recovered/Not Resolved]
  - COVID-19 [Recovered/Resolved]
  - Carbohydrate antigen 19-9 increased [Not Recovered/Not Resolved]
  - Alopecia [Recovered/Resolved]
  - Pyrexia [Recovered/Resolved]
  - Hypertension [Recovered/Resolved]
  - Lymphopenia [Recovered/Resolved]
  - Arthralgia [Not Recovered/Not Resolved]
  - Tachycardia [Recovered/Resolved]
  - Fatigue [Not Recovered/Not Resolved]
  - Dizziness [Recovered/Resolved]

NARRATIVE: CASE EVENT DATE: 20200421
